FAERS Safety Report 11908109 (Version 2)
Quarter: 2016Q2

REPORT INFORMATION
  Report Type: Spontaneous
  Country: US (occurrence: US)
  Receive Date: 20160111
  Receipt Date: 20160413
  Transmission Date: 20160815
  Serious: Yes (Other)
  Sender: FDA-Public Use
  Company Number: US-ASTELLAS-2016US000668

PATIENT
  Age: 11 Year
  Sex: Female

DRUGS (3)
  1. TACROLIMUS. [Suspect]
     Active Substance: TACROLIMUS
     Indication: LIVER TRANSPLANT
     Dosage: UNK UNK, UNKNOWN FREQ.
     Route: 065
  2. TACROLIMUS. [Suspect]
     Active Substance: TACROLIMUS
     Indication: PANCREAS TRANSPLANT
  3. TACROLIMUS. [Suspect]
     Active Substance: TACROLIMUS
     Indication: INTESTINAL TRANSPLANT

REACTIONS (10)
  - Sleep apnoea syndrome [Unknown]
  - Urosepsis [Unknown]
  - Treatment noncompliance [Unknown]
  - Urinary tract infection [Unknown]
  - Somnolence [Unknown]
  - Chronic kidney disease [Unknown]
  - Weight decreased [Unknown]
  - Lymphoid tissue hyperplasia [Unknown]
  - Immunosuppressant drug level decreased [Unknown]
  - Off label use [Unknown]

NARRATIVE: CASE EVENT DATE: 20081020
